FAERS Safety Report 9055814 (Version 1)
Quarter: 2013Q1

REPORT INFORMATION
  Report Type: Spontaneous
  Country: US (occurrence: US)
  Receive Date: 20130206
  Receipt Date: 20130206
  Transmission Date: 20140127
  Serious: Yes (Death)
  Sender: FDA-Public Use
  Company Number: CHPA2013US002355

PATIENT
  Age: 38 Year
  Sex: Male

DRUGS (6)
  1. DIPHENHYDRAMINE [Suspect]
     Dosage: UNK, UNK
     Route: 048
  2. ACETAMINOPHEN W/HYDROCODONE [Suspect]
     Dosage: UNK, UNK
     Route: 048
  3. CYCLOBENZAPRINE [Suspect]
     Dosage: UNK, UNK
     Route: 048
  4. BETA BLOCKING AGENTS [Suspect]
     Dosage: UNK, UNK
     Route: 048
  5. TRAZODONE [Suspect]
     Dosage: UNK, UNK
     Route: 048
  6. DULOXETINE [Suspect]
     Dosage: UNK, UNK
     Route: 048

REACTIONS (1)
  - Drug abuse [Fatal]
